FAERS Safety Report 4667692-3 (Version None)
Quarter: 2005Q2

REPORT INFORMATION
  Report Type: 
  Country: None (occurrence: None)
  Receive Date: 20050520
  Receipt Date: 20050511
  Transmission Date: 20051028
  Serious: Yes (Hospitalization)
  Sender: FDA-Public Use
  Company Number: US-JNJFOC-20050404603

PATIENT
  Sex: Male
  Weight: 74.84 kg

DRUGS (9)
  1. REMICADE [Suspect]
     Route: 042
  2. REMICADE [Suspect]
     Route: 042
  3. REMICADE [Suspect]
     Indication: CROHN'S DISEASE
     Route: 042
  4. PREDNISONE TAB [Concomitant]
     Indication: CROHN'S DISEASE
  5. ENTOCORT [Concomitant]
     Indication: CROHN'S DISEASE
     Dosage: ON HOLD
  6. PREVACID [Concomitant]
     Indication: CROHN'S DISEASE
  7. VICODIN [Concomitant]
  8. VICODIN [Concomitant]
     Indication: CROHN'S DISEASE
  9. BENTYL [Concomitant]
     Indication: CROHN'S DISEASE

REACTIONS (9)
  - CHILLS [None]
  - INFUSION RELATED REACTION [None]
  - INTESTINAL OBSTRUCTION [None]
  - JOINT STIFFNESS [None]
  - MUSCULOSKELETAL STIFFNESS [None]
  - MYALGIA [None]
  - PYREXIA [None]
  - RASH [None]
  - URTICARIA [None]
